FAERS Safety Report 25302317 (Version 2)
Quarter: 2025Q2

REPORT INFORMATION
  Report Type: Spontaneous
  Country: CH (occurrence: CH)
  Receive Date: 20250512
  Receipt Date: 20250514
  Transmission Date: 20250717
  Serious: Yes (Other)
  Sender: MERCK SHARP & DOHME LLC
  Company Number: CH-009507513-2283202

PATIENT
  Age: 73 Year

DRUGS (2)
  1. METFORMIN HYDROCHLORIDE\SITAGLIPTIN PHOSPHATE [Suspect]
     Active Substance: METFORMIN HYDROCHLORIDE\SITAGLIPTIN PHOSPHATE
     Dosage: 50/1000 MG TABLET, BID
     Route: 048
  2. METFORMIN HYDROCHLORIDE\SITAGLIPTIN PHOSPHATE [Suspect]
     Active Substance: METFORMIN HYDROCHLORIDE\SITAGLIPTIN PHOSPHATE
     Route: 048

REACTIONS (5)
  - Ocular hypertension [Unknown]
  - Wrong technique in product usage process [Unknown]
  - Blood glucose abnormal [Unknown]
  - Drug effect less than expected [Unknown]
  - Glycosylated haemoglobin abnormal [Unknown]
